FAERS Safety Report 6531190-2 (Version None)
Quarter: 2010Q1

REPORT INFORMATION
  Report Type: 
  Country: None (occurrence: None)
  Receive Date: 20100108
  Receipt Date: 20091224
  Transmission Date: 20100710
  Serious: Yes (Disabling)
  Sender: FDA-Public Use
  Company Number: PHHY2009GB34570

PATIENT
  Sex: Female
  Weight: 51.9 kg

DRUGS (8)
  1. STALEVO 100 [Suspect]
     Indication: PARKINSON'S DISEASE
     Dosage: 150, DAILY
     Route: 048
     Dates: start: 20090618, end: 20090630
  2. NEUPRO [Concomitant]
     Dosage: 8 MG / 24 HOURS
  3. LEVOTHYROXINE SODIUM [Concomitant]
     Dosage: 150 MCG
  4. NULYTELY [Concomitant]
     Dosage: 1 SACHET
  5. CALCICHEW D3 [Concomitant]
  6. OMEPRAZOLE [Concomitant]
     Dosage: 20 MG DAILY
  7. FELODIPINE [Concomitant]
     Dosage: 2.5 MG, QD
  8. ASPIRIN [Concomitant]
     Dosage: 75 MG DAILY

REACTIONS (2)
  - BACK PAIN [None]
  - MALAISE [None]
